FAERS Safety Report 6198101-3 (Version None)
Quarter: 2009Q2

REPORT INFORMATION
  Report Type: 
  Country: None (occurrence: None)
  Receive Date: 20090521
  Receipt Date: 20090509
  Transmission Date: 20091009
  Serious: Yes (Other)
  Sender: FDA-Public Use
  Company Number: US-PFIZER INC-2009158849

PATIENT
  Sex: Female
  Weight: 104.31 kg

DRUGS (5)
  1. CHANTIX [Suspect]
     Indication: SMOKING CESSATION THERAPY
     Dosage: 0.5 MG, 1X/DAY
     Route: 048
     Dates: start: 20090102, end: 20090117
  2. ZOLOFT [Concomitant]
  3. ALL OTHER THERAPEUTIC PRODUCTS [Concomitant]
  4. ALLEGRA [Concomitant]
     Dates: start: 20070411
  5. ALBUTEROL (PROVENTIL) [Concomitant]

REACTIONS (4)
  - ANGER [None]
  - DEPRESSION [None]
  - FEELING ABNORMAL [None]
  - PAIN [None]
